FAERS Safety Report 18960038 (Version 1)
Quarter: 2021Q1

REPORT INFORMATION
  Report Type: Spontaneous
  Country: DE (occurrence: DE)
  Receive Date: 20210302
  Receipt Date: 20210302
  Transmission Date: 20210420
  Serious: Yes (Death, Life-Threatening, Hospitalization, Other)
  Sender: FDA-Public Use
  Company Number: DE-B.I. PHARMACEUTICALS,INC./RIDGEFIELD-2021-BI-086701

PATIENT
  Age: 83 Year
  Sex: Male
  Weight: 80 kg

DRUGS (1)
  1. PRADAXA [Suspect]
     Active Substance: DABIGATRAN ETEXILATE MESYLATE
     Indication: PRODUCT USED FOR UNKNOWN INDICATION
     Route: 065

REACTIONS (7)
  - Fracture [Unknown]
  - Wound [Unknown]
  - Fall [Unknown]
  - Depressed level of consciousness [Unknown]
  - Disorientation [Unknown]
  - Death [Fatal]
  - Traumatic haemorrhage [Unknown]

NARRATIVE: CASE EVENT DATE: 20200901
